FAERS Safety Report 8285479-X (Version None)
Quarter: 2012Q2

REPORT INFORMATION
  Report Type: 
  Country: None (occurrence: None)
  Receive Date: 20120413
  Receipt Date: 20111214
  Transmission Date: 20120825
  Serious: No
  Sender: FDA-Public Use
  Company Number: US-ASTRAZENECA-2011SE74143

PATIENT
  Sex: Female

DRUGS (4)
  1. NEXIUM [Suspect]
     Indication: GASTROOESOPHAGEAL REFLUX DISEASE
     Route: 048
  2. PRILOSEC [Suspect]
     Indication: GASTROOESOPHAGEAL REFLUX DISEASE
     Route: 048
  3. GINKO BILOBA [Concomitant]
  4. OMEXEPIL [Concomitant]

REACTIONS (3)
  - GASTROOESOPHAGEAL REFLUX DISEASE [None]
  - DRUG INEFFECTIVE [None]
  - HYPERCHLORHYDRIA [None]
